FAERS Safety Report 24442664 (Version 2)
Quarter: 2024Q4

REPORT INFORMATION
  Report Type: Report from Study
  Country: DE (occurrence: DE)
  Receive Date: 20241016
  Receipt Date: 20241017
  Transmission Date: 20250115
  Serious: No
  Sender: ROCHE
  Company Number: DE-ROCHE-3555952

PATIENT
  Age: 38 Year
  Sex: Male
  Weight: 72.0 kg

DRUGS (3)
  1. EMICIZUMAB [Suspect]
     Active Substance: EMICIZUMAB
     Indication: Haemophilia A without inhibitors
     Route: 058
     Dates: start: 20220607, end: 20220705
  2. EMICIZUMAB [Suspect]
     Active Substance: EMICIZUMAB
     Indication: Haemophilia A without inhibitors
     Route: 058
     Dates: start: 20220712
  3. BERIATE [Concomitant]
     Active Substance: ANTIHEMOPHILIC FACTOR HUMAN
     Indication: Factor VIII deficiency
     Route: 042
     Dates: start: 20220615

REACTIONS (1)
  - Carpal tunnel syndrome [Not Recovered/Not Resolved]

NARRATIVE: CASE EVENT DATE: 20231221
